FAERS Safety Report 7755017-6 (Version None)
Quarter: 2011Q3

REPORT INFORMATION
  Report Type: 
  Country: None (occurrence: None)
  Receive Date: 20110916
  Receipt Date: 20110907
  Transmission Date: 20111222
  Serious: Yes (Other)
  Sender: FDA-Public Use
  Company Number: US-AMGEN-USASP2011046259

PATIENT
  Age: 89 Year
  Sex: Female
  Weight: 69.388 kg

DRUGS (6)
  1. COUMADIN [Concomitant]
     Indication: ATRIAL FIBRILLATION
     Dosage: UNK
     Route: 048
  2. GEVIA [Concomitant]
     Indication: DIABETES MELLITUS
     Dosage: UNK
     Route: 048
  3. ANTIHYPERTENSIVES [Concomitant]
     Indication: HYPERTENSION
     Dosage: UNK
     Route: 048
  4. WATER PILL [Concomitant]
     Indication: PRODUCT USED FOR UNKNOWN INDICATION
     Dosage: UNK
     Route: 048
  5. PROCRIT [Suspect]
     Indication: RED BLOOD CELL COUNT DECREASED
     Dosage: UNK
     Route: 058
     Dates: start: 20100101
  6. GOUT [Concomitant]
     Indication: GOUT
     Dosage: UNK

REACTIONS (2)
  - SCAN ABNORMAL [None]
  - SKIN CANCER [None]
